FAERS Safety Report 12405133 (Version 2)
Quarter: 2017Q1

REPORT INFORMATION
  Report Type: Spontaneous
  Country: US (occurrence: US)
  Receive Date: 20160525
  Receipt Date: 20170314
  Transmission Date: 20170428
  Serious: No
  Sender: FDA-Public Use
  Company Number: US-ACTELION-A-US2016-136735

PATIENT
  Age: 57 Year
  Sex: Male

DRUGS (2)
  1. VALCHLOR [Suspect]
     Active Substance: MECHLORETHAMINE
     Indication: MYCOSIS FUNGOIDES
     Dosage: UNK UNK, QPM
     Route: 061
     Dates: start: 201511
  2. CLOBETASOL [Concomitant]
     Active Substance: CLOBETASOL
     Dosage: UNK, QAM

REACTIONS (5)
  - Erythema [Recovered/Resolved]
  - Expired product administered [Unknown]
  - Drug dose omission [Unknown]
  - Alopecia [Recovering/Resolving]
  - Skin irritation [Recovered/Resolved]
